FAERS Safety Report 25256017 (Version 1)
Quarter: 2025Q2

REPORT INFORMATION
  Report Type: Spontaneous
  Country: IT (occurrence: IT)
  Receive Date: 20250430
  Receipt Date: 20250430
  Transmission Date: 20250716
  Serious: Yes (Hospitalization)
  Sender: MYLAN
  Company Number: None

PATIENT
  Age: 81 Year
  Sex: Female

DRUGS (8)
  1. ZOLOFT [Suspect]
     Active Substance: SERTRALINE HYDROCHLORIDE
     Indication: Product used for unknown indication
     Dates: start: 20250407, end: 20250407
  2. ZOLOFT [Suspect]
     Active Substance: SERTRALINE HYDROCHLORIDE
     Route: 048
     Dates: start: 20250407, end: 20250407
  3. ZOLOFT [Suspect]
     Active Substance: SERTRALINE HYDROCHLORIDE
     Route: 048
     Dates: start: 20250407, end: 20250407
  4. ZOLOFT [Suspect]
     Active Substance: SERTRALINE HYDROCHLORIDE
     Dates: start: 20250407, end: 20250407
  5. NIMESULIDE [Suspect]
     Active Substance: NIMESULIDE
     Indication: Product used for unknown indication
     Dates: start: 20250407, end: 20250407
  6. NIMESULIDE [Suspect]
     Active Substance: NIMESULIDE
     Route: 048
     Dates: start: 20250407, end: 20250407
  7. NIMESULIDE [Suspect]
     Active Substance: NIMESULIDE
     Route: 048
     Dates: start: 20250407, end: 20250407
  8. NIMESULIDE [Suspect]
     Active Substance: NIMESULIDE
     Dates: start: 20250407, end: 20250407

REACTIONS (3)
  - Abdominal pain [Not Recovered/Not Resolved]
  - Drug abuse [Not Recovered/Not Resolved]
  - Intentional overdose [Not Recovered/Not Resolved]

NARRATIVE: CASE EVENT DATE: 20250408
